FAERS Safety Report 14516163 (Version 2)
Quarter: 2018Q2

REPORT INFORMATION
  Report Type: Report from Study
  Country: CA (occurrence: CA)
  Receive Date: 20180211
  Receipt Date: 20180404
  Transmission Date: 20180711
  Serious: Yes (Other)
  Sender: FDA-Public Use
  Company Number: CA-MYLANLABS-2018M1010190

PATIENT
  Age: 4 Year
  Sex: Female

DRUGS (1)
  1. EPIPEN JR [Suspect]
     Active Substance: EPINEPHRINE
     Indication: HYPERSENSITIVITY

REACTIONS (6)
  - Device use issue [Unknown]
  - Product quality issue [Unknown]
  - Anaphylactic reaction [Recovered/Resolved]
  - Needle issue [Unknown]
  - Device failure [Unknown]
  - Drug dose omission [Unknown]
